FAERS Safety Report 6092118-5 (Version None)
Quarter: 2009Q1

REPORT INFORMATION
  Report Type: 
  Country: None (occurrence: None)
  Receive Date: 20090223
  Receipt Date: 20090223
  Transmission Date: 20090719
  Serious: Yes (Hospitalization)
  Sender: FDA-Public Use
  Company Number: None

PATIENT
  Age: 65 Year
  Sex: Female
  Weight: 95.709 kg

DRUGS (1)
  1. ISOPTIN SR [Suspect]
     Indication: HYPERTENSION
     Dosage: 1.5 TABS ORAL DAILY
     Route: 048
     Dates: start: 20090113, end: 20090118

REACTIONS (6)
  - ARRHYTHMIA [None]
  - BLOOD PRESSURE INADEQUATELY CONTROLLED [None]
  - INFARCTION [None]
  - PALPITATIONS [None]
  - THERAPEUTIC RESPONSE UNEXPECTED WITH DRUG SUBSTITUTION [None]
  - TREATMENT FAILURE [None]
